FAERS Safety Report 4501405-0 (Version None)
Quarter: 2004Q4

REPORT INFORMATION
  Report Type: 
  Country: None (occurrence: None)
  Receive Date: 20040928
  Receipt Date: 20040823
  Transmission Date: 20050328
  Serious: No
  Sender: FDA-Public Use
  Company Number: 04P-163-0271228-00

PATIENT
  Age: 57 Year
  Sex: Female
  Weight: 72.5755 kg

DRUGS (3)
  1. HUMIRA [Suspect]
     Indication: RHEUMATOID ARTHRITIS
     Dosage: 40 MG 1 IN 2 WK SUBCUTANEOUS
     Route: 058
     Dates: start: 20040806, end: 20040806
  2. CELECOXIB (CELECOXIB) [Suspect]
     Dosage: PER ORAL
     Route: 048
  3. ATENOLOL [Concomitant]

REACTIONS (2)
  - DRUG INTERACTION [None]
  - INJECTION SITE URTICARIA [None]
